FAERS Safety Report 4362447-1 (Version None)
Quarter: 2004Q2

REPORT INFORMATION
  Report Type: 
  Country: None (occurrence: None)
  Receive Date: 20040521
  Receipt Date: 20040519
  Transmission Date: 20050107
  Serious: Yes (Other)
  Sender: FDA-Public Use
  Company Number: US-GLAXOSMITHKLINE-A0511439A

PATIENT
  Sex: Male

DRUGS (3)
  1. VALTREX [Suspect]
     Route: 048
  2. PREDNISONE [Concomitant]
  3. MULTIPLE DRUGS [Concomitant]

REACTIONS (1)
  - STEVENS-JOHNSON SYNDROME [None]
